FAERS Safety Report 8559027-0 (Version None)
Quarter: 2012Q3

REPORT INFORMATION
  Report Type: 
  Country: None (occurrence: None)
  Receive Date: 20120802
  Receipt Date: 20120725
  Transmission Date: 20120928
  Serious: Yes (Other)
  Sender: FDA-Public Use
  Company Number: US-BIOGENIDEC-2012BI027727

PATIENT
  Sex: Female
  Weight: 64 kg

DRUGS (3)
  1. BUPAP [Concomitant]
  2. AVONEX [Suspect]
     Indication: MULTIPLE SCLEROSIS
     Route: 030
  3. ROBAXIN [Concomitant]

REACTIONS (3)
  - COMPLEX PARTIAL SEIZURES [None]
  - SARCOIDOSIS [None]
  - PARTIAL SEIZURES [None]
